FAERS Safety Report 5777035-X (Version None)
Quarter: 2008Q2

REPORT INFORMATION
  Report Type: 
  Country: None (occurrence: None)
  Receive Date: 20080617
  Receipt Date: 20080617
  Transmission Date: 20081010
  Serious: Yes (Hospitalization)
  Sender: FDA-Public Use
  Company Number: None

PATIENT
  Age: 43 Year
  Sex: Female

DRUGS (5)
  1. CEFTRIAXONE [Suspect]
     Indication: LYME DISEASE
     Dosage: 2G IV QD
     Route: 042
     Dates: start: 20080202, end: 20080215
  2. FLUTICASONE PROPIONATE [Concomitant]
  3. METOPROLOL [Concomitant]
  4. ONDANSETRON [Concomitant]
  5. CHLORTHALIDONE [Concomitant]

REACTIONS (3)
  - BODY TEMPERATURE INCREASED [None]
  - RASH [None]
  - WHITE BLOOD CELL COUNT DECREASED [None]
